FAERS Safety Report 5292070-6 (Version None)
Quarter: 2007Q2

REPORT INFORMATION
  Report Type: 
  Country: None (occurrence: None)
  Receive Date: 20070410
  Receipt Date: 20070329
  Transmission Date: 20071010
  Serious: Yes (Hospitalization)
  Sender: FDA-Public Use
  Company Number: JP-BAYER-200710242BYL

PATIENT
  Age: 77 Year
  Sex: Female

DRUGS (4)
  1. ADALAT [Suspect]
     Indication: ESSENTIAL HYPERTENSION
     Dosage: UNIT DOSE: 40 MG
     Route: 048
     Dates: start: 20061024
  2. FLUITRAN [Concomitant]
     Indication: ESSENTIAL HYPERTENSION
     Route: 048
     Dates: start: 20041124
  3. BLOPRESS [Concomitant]
     Indication: ESSENTIAL HYPERTENSION
     Route: 048
     Dates: start: 20041124
  4. MEVALOTIN [Concomitant]
     Route: 048
     Dates: start: 20041124

REACTIONS (1)
  - VENTRICULAR TACHYCARDIA [None]
